FAERS Safety Report 15028488 (Version 1)
Quarter: 2018Q2

REPORT INFORMATION
  Report Type: Spontaneous
  Country: BR (occurrence: BR)
  Receive Date: 20180619
  Receipt Date: 20180619
  Transmission Date: 20180711
  Serious: Yes (Hospitalization, Other)
  Sender: FDA-Public Use
  Company Number: BR-GLAXOSMITHKLINE-BR2018GSK106982

PATIENT
  Age: 10 Month
  Sex: Male
  Weight: 8 kg

DRUGS (1)
  1. FLIXOTIDE (CFC-FREE) [Suspect]
     Active Substance: FLUTICASONE PROPIONATE
     Indication: BRONCHIOLITIS
     Dosage: 1 DF, QD
     Route: 055
     Dates: start: 201804

REACTIONS (4)
  - Product use in unapproved indication [Unknown]
  - Hospitalisation [Unknown]
  - Product use issue [Unknown]
  - Drug prescribing error [Unknown]

NARRATIVE: CASE EVENT DATE: 20180416
